FAERS Safety Report 4847733-0 (Version None)
Quarter: 2005Q4

REPORT INFORMATION
  Report Type: 
  Country: None (occurrence: None)
  Receive Date: 20051205
  Receipt Date: 20030611
  Transmission Date: 20060501
  Serious: Yes (Hospitalization)
  Sender: FDA-Public Use
  Company Number: GXKR2003GB00772

PATIENT
  Age: 71 Year
  Sex: Male

DRUGS (11)
  1. ASPIRIN [Suspect]
     Indication: MYOCARDIAL INFARCTION
     Dosage: 300 MG, QD, ORAL
     Route: 048
     Dates: start: 19800101, end: 20030430
  2. ARTHROTEC [Suspect]
     Indication: ARTHRITIS
     Dosage: ^75^ 1 TABLET, BID, ORAL
     Route: 048
     Dates: start: 19830101, end: 20030430
  3. CLOPIDOGREL (CLOPIDOGREL) [Concomitant]
  4. RANITIDINE [Concomitant]
  5. NICORANDIL (NICORANDIL) [Concomitant]
  6. FUROSEMIDE [Concomitant]
  7. IMDUR [Concomitant]
  8. SIMVASTATIN [Concomitant]
  9. DIGOXIN [Concomitant]
  10. DILTIAZEM [Concomitant]
  11. IRON (IRON) [Concomitant]

REACTIONS (6)
  - DIZZINESS [None]
  - DYSPNOEA [None]
  - ERYTHEMA [None]
  - FAECES DISCOLOURED [None]
  - GASTRIC ULCER [None]
  - HIATUS HERNIA [None]
